FAERS Safety Report 10206956 (Version 1)
Quarter: 2014Q2

REPORT INFORMATION
  Report Type: Spontaneous
  Country: US (occurrence: None)
  Receive Date: 20140527
  Receipt Date: 20140527
  Transmission Date: 20141212
  Serious: Yes (Hospitalization)
  Sender: FDA-Public Use
  Company Number: UNT-2014-000490

PATIENT
  Age: 71 Year
  Sex: Female

DRUGS (2)
  1. REMODULIN (TREPROSTINIL SODIUM) INJECTION, 5MG/ML [Suspect]
     Indication: COR PULMONALE CHRONIC
     Route: 042
     Dates: start: 20101129
  2. REVATIO [Concomitant]

REACTIONS (1)
  - Bladder cancer [None]
